FAERS Safety Report 12520692 (Version 1)
Quarter: 2016Q3

REPORT INFORMATION
  Report Type: Spontaneous
  Country: US (occurrence: US)
  Receive Date: 20160701
  Receipt Date: 20160701
  Transmission Date: 20161109
  Serious: No
  Sender: FDA-Public Use
  Company Number: US-ELI_LILLY_AND_COMPANY-US201606006207

PATIENT
  Sex: Female

DRUGS (8)
  1. RAMIPRIL. [Concomitant]
     Active Substance: RAMIPRIL
  2. OMEPRAZOLE. [Concomitant]
     Active Substance: OMEPRAZOLE
     Dosage: 20 MG, UNK
  3. FORTEO [Suspect]
     Active Substance: TERIPARATIDE
     Indication: BONE DISORDER
     Dosage: UNK, QD
     Route: 065
     Dates: start: 20160609
  4. SIMVASTATIN. [Concomitant]
     Active Substance: SIMVASTATIN
  5. MELOXICAM. [Concomitant]
     Active Substance: MELOXICAM
  6. ASPIRIN                            /00002701/ [Concomitant]
     Active Substance: ASPIRIN
  7. FAMOTIDINE. [Concomitant]
     Active Substance: FAMOTIDINE
  8. CALCIUM [Concomitant]
     Active Substance: CALCIUM

REACTIONS (10)
  - Chest discomfort [Unknown]
  - Abdominal pain upper [Recovered/Resolved]
  - Dyspnoea [Unknown]
  - Abdominal distension [Unknown]
  - Vomiting [Unknown]
  - Asthenia [Unknown]
  - Drug dose omission [Unknown]
  - Muscular weakness [Unknown]
  - Lethargy [Unknown]
  - Nausea [Recovering/Resolving]

NARRATIVE: CASE EVENT DATE: 201606
